FAERS Safety Report 9337254 (Version 2)
Quarter: 2013Q3

REPORT INFORMATION
  Report Type: Spontaneous
  Country: US (occurrence: US)
  Receive Date: 20130607
  Receipt Date: 20130902
  Transmission Date: 20140515
  Serious: Yes (Congenital Anomaly, Other)
  Sender: FDA-Public Use
  Company Number: US-PFIZER INC-2011285524

PATIENT
  Sex: Female

DRUGS (14)
  1. ZOLOFT [Suspect]
     Dosage: UNK
     Route: 064
  2. PROZAC [Concomitant]
     Dosage: UNK
     Route: 064
  3. TOPAMAX [Concomitant]
     Dosage: UNK
     Route: 064
  4. PRENATAL VITAMINS [Concomitant]
     Dosage: UNK
     Route: 064
  5. TYLENOL [Concomitant]
     Dosage: UNK
     Route: 064
  6. SUDAFED [Concomitant]
     Dosage: UNK
     Route: 064
  7. CLINDAMYCIN [Concomitant]
     Dosage: UNK
     Route: 064
  8. PAXIL [Concomitant]
     Dosage: UNK
     Route: 064
  9. FLAGYL [Concomitant]
     Dosage: UNK
     Route: 064
  10. IMODIUM [Concomitant]
     Dosage: UNK
     Route: 064
  11. MACROBID [Concomitant]
     Dosage: UNK
     Route: 064
  12. LOPERAMIDE [Concomitant]
     Dosage: UNK
     Route: 064
  13. METRONIDAZOLE [Concomitant]
     Dosage: UNK
     Route: 064
  14. ACETAMINOPHEN W/CODEINE [Concomitant]
     Dosage: UNK
     Route: 064

REACTIONS (5)
  - Foetal exposure during pregnancy [Unknown]
  - Limb reduction defect [Unknown]
  - Fibula agenesis [Unknown]
  - Congenital foot malformation [Unknown]
  - Congenital anomaly [Unknown]
